FAERS Safety Report 17506562 (Version 1)
Quarter: 2020Q1

REPORT INFORMATION
  Report Type: Spontaneous
  Country: GB (occurrence: GB)
  Receive Date: 20200306
  Receipt Date: 20200306
  Transmission Date: 20200409
  Serious: Yes (Other)
  Sender: FDA-Public Use
  Company Number: GB-ROCHE-2562288

PATIENT
  Age: 50 Year
  Sex: Female
  Weight: 54 kg

DRUGS (7)
  1. RITUXIMAB. [Suspect]
     Active Substance: RITUXIMAB
     Indication: NEPHROTIC SYNDROME
     Dosage: APPROXIMATELY 75MLS IN
     Route: 042
     Dates: start: 20200214, end: 20200214
  2. FUROSEMIDE. [Concomitant]
     Active Substance: FUROSEMIDE
  3. RAMIPRIL. [Concomitant]
     Active Substance: RAMIPRIL
  4. PARACETAMOL [Concomitant]
     Active Substance: ACETAMINOPHEN
  5. CANNABIS [Concomitant]
     Active Substance: CANNABIS SATIVA SUBSP. INDICA TOP
     Dosage: ON A REGULAR BASIS
     Route: 065
  6. OMEPRAZOLE SODIUM [Concomitant]
     Active Substance: OMEPRAZOLE SODIUM
  7. RANITIDINE HYDROCHLORIDE. [Concomitant]
     Active Substance: RANITIDINE HYDROCHLORIDE

REACTIONS (7)
  - Malaise [Unknown]
  - Throat tightness [Unknown]
  - Agitation [Unknown]
  - Hypersensitivity [Recovered/Resolved]
  - Dyspnoea [Unknown]
  - Hypertension [Unknown]
  - Rhinitis [Unknown]

NARRATIVE: CASE EVENT DATE: 20200214
